FAERS Safety Report 10614483 (Version 1)
Quarter: 2014Q4

REPORT INFORMATION
  Report Type: Spontaneous
  Country: CN (occurrence: CN)
  Receive Date: 20141129
  Receipt Date: 20141129
  Transmission Date: 20150529
  Serious: Yes (Other)
  Sender: FDA-Public Use
  Company Number: CN-JNJFOC-20140412322

PATIENT
  Age: 57 Year
  Sex: Male
  Weight: 55 kg

DRUGS (5)
  1. TYLENOL COLD [Suspect]
     Active Substance: ACETAMINOPHEN\CHLORPHENIRAMINE MALEATE\PHENYLPROPANOLAMINE
     Indication: NASOPHARYNGITIS
     Route: 048
     Dates: start: 20130131, end: 20130203
  2. ZHENG QING FENG TONG NING [Suspect]
     Active Substance: HERBALS
     Indication: CARDIOVASCULAR DISORDER
     Route: 065
     Dates: start: 20130126, end: 20130201
  3. ZHONG TONG AN CAPSULE [Concomitant]
     Indication: SWELLING
     Route: 065
     Dates: start: 20130126, end: 20130203
  4. ZHENG QING FENG TONG NING [Suspect]
     Active Substance: HERBALS
     Indication: LIGAMENT SPRAIN
     Route: 065
     Dates: start: 20130126, end: 20130201
  5. DU YI WEI CAPSULE [Concomitant]
     Indication: CARDIOVASCULAR DISORDER
     Route: 065
     Dates: start: 20130126, end: 20130203

REACTIONS (4)
  - Urticaria [Recovered/Resolved]
  - Product quality issue [None]
  - Rash pruritic [Recovered/Resolved]
  - Swelling [None]

NARRATIVE: CASE EVENT DATE: 20130201
